FAERS Safety Report 22947709 (Version 6)
Quarter: 2025Q4

REPORT INFORMATION
  Report Type: Spontaneous
  Country: CA (occurrence: CA)
  Receive Date: 20230915
  Receipt Date: 20251017
  Transmission Date: 20260118
  Serious: Yes (Death, Hospitalization, Other)
  Sender: MYLAN
  Company Number: CA-MYLANLABS-2023M1092612

PATIENT
  Age: 54 Year
  Sex: Male

DRUGS (336)
  1. SERTRALINE [Interacting]
     Active Substance: SERTRALINE HYDROCHLORIDE
     Indication: Bipolar disorder
     Dosage: UNK
     Route: 065
  2. SERTRALINE [Interacting]
     Active Substance: SERTRALINE HYDROCHLORIDE
     Dosage: UNK
  3. SERTRALINE [Interacting]
     Active Substance: SERTRALINE HYDROCHLORIDE
     Dosage: UNK
  4. SERTRALINE [Interacting]
     Active Substance: SERTRALINE HYDROCHLORIDE
     Dosage: UNK
     Route: 065
  5. SERTRALINE [Interacting]
     Active Substance: SERTRALINE HYDROCHLORIDE
     Dosage: UNK
     Route: 048
  6. SERTRALINE [Interacting]
     Active Substance: SERTRALINE HYDROCHLORIDE
     Dosage: UNK
  7. SERTRALINE [Interacting]
     Active Substance: SERTRALINE HYDROCHLORIDE
     Dosage: UNK
  8. SERTRALINE [Interacting]
     Active Substance: SERTRALINE HYDROCHLORIDE
     Dosage: UNK
     Route: 048
  9. SERTRALINE [Interacting]
     Active Substance: SERTRALINE HYDROCHLORIDE
     Indication: Mental disorder
     Dosage: UNK
     Route: 065
  10. SERTRALINE [Interacting]
     Active Substance: SERTRALINE HYDROCHLORIDE
     Indication: Bipolar disorder
     Dosage: UNK
  11. SERTRALINE [Interacting]
     Active Substance: SERTRALINE HYDROCHLORIDE
     Dosage: UNK
  12. SERTRALINE [Interacting]
     Active Substance: SERTRALINE HYDROCHLORIDE
     Dosage: UNK
     Route: 065
  13. SERTRALINE [Interacting]
     Active Substance: SERTRALINE HYDROCHLORIDE
     Dosage: UNK
     Route: 048
  14. SERTRALINE [Interacting]
     Active Substance: SERTRALINE HYDROCHLORIDE
     Dosage: UNK
  15. SERTRALINE [Interacting]
     Active Substance: SERTRALINE HYDROCHLORIDE
     Dosage: UNK
  16. SERTRALINE [Interacting]
     Active Substance: SERTRALINE HYDROCHLORIDE
     Dosage: UNK
     Route: 048
  17. SERTRALINE HYDROCHLORIDE [Interacting]
     Active Substance: SERTRALINE HYDROCHLORIDE
     Indication: Bipolar disorder
     Dosage: UNK
  18. SERTRALINE HYDROCHLORIDE [Interacting]
     Active Substance: SERTRALINE HYDROCHLORIDE
     Dosage: UNK
     Route: 065
  19. SERTRALINE HYDROCHLORIDE [Interacting]
     Active Substance: SERTRALINE HYDROCHLORIDE
     Dosage: UNK
     Route: 065
  20. SERTRALINE HYDROCHLORIDE [Interacting]
     Active Substance: SERTRALINE HYDROCHLORIDE
     Dosage: UNK
  21. VALPROIC ACID [Interacting]
     Active Substance: VALPROIC ACID
     Indication: Bipolar disorder
     Dosage: UNK
  22. VALPROIC ACID [Interacting]
     Active Substance: VALPROIC ACID
     Dosage: UNK
     Route: 065
  23. VALPROIC ACID [Interacting]
     Active Substance: VALPROIC ACID
     Dosage: UNK
     Route: 065
  24. VALPROIC ACID [Interacting]
     Active Substance: VALPROIC ACID
     Dosage: UNK
  25. VALPROIC ACID [Interacting]
     Active Substance: VALPROIC ACID
     Indication: Bipolar disorder
     Dosage: UNK
  26. VALPROIC ACID [Interacting]
     Active Substance: VALPROIC ACID
     Indication: Mental disorder
     Dosage: UNK
     Route: 065
  27. VALPROIC ACID [Interacting]
     Active Substance: VALPROIC ACID
     Dosage: UNK
     Route: 065
  28. VALPROIC ACID [Interacting]
     Active Substance: VALPROIC ACID
     Dosage: UNK
  29. CELECOXIB [Interacting]
     Active Substance: CELECOXIB
     Indication: Psychotic disorder
     Dosage: UNK
  30. CELECOXIB [Interacting]
     Active Substance: CELECOXIB
     Dosage: UNK
     Route: 065
  31. CELECOXIB [Interacting]
     Active Substance: CELECOXIB
     Dosage: UNK
     Route: 065
  32. CELECOXIB [Interacting]
     Active Substance: CELECOXIB
     Dosage: UNK
  33. QUETIAPINE [Interacting]
     Active Substance: QUETIAPINE
     Indication: Bipolar disorder
     Dosage: UNK
  34. QUETIAPINE [Interacting]
     Active Substance: QUETIAPINE
     Indication: Depression
     Dosage: UNK
     Route: 048
  35. QUETIAPINE [Interacting]
     Active Substance: QUETIAPINE
     Dosage: UNK
     Route: 048
  36. QUETIAPINE [Interacting]
     Active Substance: QUETIAPINE
     Dosage: UNK
  37. ATAZANAVIR [Interacting]
     Active Substance: ATAZANAVIR
     Indication: HIV infection
     Dosage: UNK
     Route: 065
  38. ATAZANAVIR [Interacting]
     Active Substance: ATAZANAVIR
     Dosage: UNK
  39. ATAZANAVIR [Interacting]
     Active Substance: ATAZANAVIR
     Dosage: UNK
  40. ATAZANAVIR [Interacting]
     Active Substance: ATAZANAVIR
     Dosage: UNK
     Route: 065
  41. ATAZANAVIR [Interacting]
     Active Substance: ATAZANAVIR
     Dosage: UNK
     Route: 048
  42. ATAZANAVIR [Interacting]
     Active Substance: ATAZANAVIR
     Dosage: UNK
  43. ATAZANAVIR [Interacting]
     Active Substance: ATAZANAVIR
     Dosage: UNK
  44. ATAZANAVIR [Interacting]
     Active Substance: ATAZANAVIR
     Dosage: UNK
     Route: 048
  45. BUPROPION [Interacting]
     Active Substance: BUPROPION
     Indication: Depression
     Dosage: UNK
     Route: 065
  46. BUPROPION [Interacting]
     Active Substance: BUPROPION
     Indication: Mental disorder
     Dosage: UNK
  47. BUPROPION [Interacting]
     Active Substance: BUPROPION
     Indication: Bipolar disorder
     Dosage: UNK
  48. BUPROPION [Interacting]
     Active Substance: BUPROPION
     Dosage: UNK
     Route: 065
  49. BUPROPION [Interacting]
     Active Substance: BUPROPION
     Dosage: UNK
     Route: 048
  50. BUPROPION [Interacting]
     Active Substance: BUPROPION
     Dosage: UNK
  51. BUPROPION [Interacting]
     Active Substance: BUPROPION
     Dosage: UNK
  52. BUPROPION [Interacting]
     Active Substance: BUPROPION
     Dosage: UNK
     Route: 048
  53. BUPROPION [Interacting]
     Active Substance: BUPROPION
     Indication: Product used for unknown indication
     Dosage: UNK
  54. BUPROPION [Interacting]
     Active Substance: BUPROPION
     Dosage: UNK
     Route: 065
  55. BUPROPION [Interacting]
     Active Substance: BUPROPION
     Dosage: UNK
     Route: 065
  56. BUPROPION [Interacting]
     Active Substance: BUPROPION
     Dosage: UNK
  57. BUPROPION HYDROCHLORIDE [Interacting]
     Active Substance: BUPROPION HYDROCHLORIDE
     Indication: Depression
     Dosage: UNK
  58. BUPROPION HYDROCHLORIDE [Interacting]
     Active Substance: BUPROPION HYDROCHLORIDE
     Dosage: UNK
     Route: 065
  59. BUPROPION HYDROCHLORIDE [Interacting]
     Active Substance: BUPROPION HYDROCHLORIDE
     Dosage: UNK
     Route: 065
  60. BUPROPION HYDROCHLORIDE [Interacting]
     Active Substance: BUPROPION HYDROCHLORIDE
     Dosage: UNK
  61. BUPROPION HYDROCHLORIDE [Interacting]
     Active Substance: BUPROPION HYDROCHLORIDE
     Indication: Product used for unknown indication
     Dosage: UNK
  62. BUPROPION HYDROCHLORIDE [Interacting]
     Active Substance: BUPROPION HYDROCHLORIDE
     Dosage: UNK
     Route: 065
  63. BUPROPION HYDROCHLORIDE [Interacting]
     Active Substance: BUPROPION HYDROCHLORIDE
     Dosage: UNK
     Route: 065
  64. BUPROPION HYDROCHLORIDE [Interacting]
     Active Substance: BUPROPION HYDROCHLORIDE
     Dosage: UNK
  65. CLONAZEPAM [Interacting]
     Active Substance: CLONAZEPAM
     Indication: Bipolar disorder
     Dosage: UNK
     Route: 065
  66. CLONAZEPAM [Interacting]
     Active Substance: CLONAZEPAM
     Indication: Depression
     Dosage: UNK
  67. CLONAZEPAM [Interacting]
     Active Substance: CLONAZEPAM
     Indication: Mental disorder
     Dosage: UNK
  68. CLONAZEPAM [Interacting]
     Active Substance: CLONAZEPAM
     Dosage: UNK
     Route: 065
  69. CLONAZEPAM [Interacting]
     Active Substance: CLONAZEPAM
     Dosage: UNK
     Route: 048
  70. CLONAZEPAM [Interacting]
     Active Substance: CLONAZEPAM
     Dosage: UNK
  71. CLONAZEPAM [Interacting]
     Active Substance: CLONAZEPAM
     Dosage: UNK
  72. CLONAZEPAM [Interacting]
     Active Substance: CLONAZEPAM
     Dosage: UNK
     Route: 048
  73. EFAVIRENZ [Interacting]
     Active Substance: EFAVIRENZ
     Indication: HIV infection
     Dosage: 800 MILLIGRAM
     Route: 065
  74. EFAVIRENZ [Interacting]
     Active Substance: EFAVIRENZ
     Dosage: 800 MILLIGRAM
  75. EFAVIRENZ [Interacting]
     Active Substance: EFAVIRENZ
     Dosage: 800 MILLIGRAM
  76. EFAVIRENZ [Interacting]
     Active Substance: EFAVIRENZ
     Dosage: 800 MILLIGRAM
     Route: 065
  77. EFAVIRENZ [Interacting]
     Active Substance: EFAVIRENZ
     Dosage: UNK
  78. EFAVIRENZ [Interacting]
     Active Substance: EFAVIRENZ
     Dosage: UNK
  79. EFAVIRENZ [Interacting]
     Active Substance: EFAVIRENZ
     Dosage: UNK
     Route: 065
  80. EFAVIRENZ [Interacting]
     Active Substance: EFAVIRENZ
     Dosage: UNK
     Route: 065
  81. EFAVIRENZ [Interacting]
     Active Substance: EFAVIRENZ
     Dosage: UNK
  82. EFAVIRENZ [Interacting]
     Active Substance: EFAVIRENZ
     Dosage: UNK
  83. EFAVIRENZ [Interacting]
     Active Substance: EFAVIRENZ
     Dosage: UNK
     Route: 048
  84. EFAVIRENZ [Interacting]
     Active Substance: EFAVIRENZ
     Dosage: UNK
     Route: 048
  85. EFAVIRENZ [Interacting]
     Active Substance: EFAVIRENZ
     Dosage: UNK
  86. EFAVIRENZ [Interacting]
     Active Substance: EFAVIRENZ
     Dosage: UNK
  87. EFAVIRENZ [Interacting]
     Active Substance: EFAVIRENZ
     Dosage: UNK
     Route: 065
  88. EFAVIRENZ [Interacting]
     Active Substance: EFAVIRENZ
     Dosage: UNK
     Route: 065
  89. EFAVIRENZ [Interacting]
     Active Substance: EFAVIRENZ
     Dosage: 400 MILLIGRAM, QD (1 EVERY 12 HOURS)
     Route: 048
  90. EFAVIRENZ [Interacting]
     Active Substance: EFAVIRENZ
     Dosage: 400 MILLIGRAM, QD (1 EVERY 12 HOURS)
  91. EFAVIRENZ [Interacting]
     Active Substance: EFAVIRENZ
     Dosage: 400 MILLIGRAM, QD (1 EVERY 12 HOURS)
  92. EFAVIRENZ [Interacting]
     Active Substance: EFAVIRENZ
     Dosage: 400 MILLIGRAM, QD (1 EVERY 12 HOURS)
     Route: 048
  93. ENFUVIRTIDE [Interacting]
     Active Substance: ENFUVIRTIDE
     Indication: HIV infection
     Dosage: UNK
  94. ENFUVIRTIDE [Interacting]
     Active Substance: ENFUVIRTIDE
     Dosage: UNK
     Route: 065
  95. ENFUVIRTIDE [Interacting]
     Active Substance: ENFUVIRTIDE
     Dosage: UNK
     Route: 065
  96. ENFUVIRTIDE [Interacting]
     Active Substance: ENFUVIRTIDE
     Dosage: UNK
  97. ISENTRESS [Interacting]
     Active Substance: RALTEGRAVIR POTASSIUM
     Indication: HIV infection
     Dosage: 800 MILLIGRAM, QD (1 EVERY 1 DAYS)
     Route: 065
  98. ISENTRESS [Interacting]
     Active Substance: RALTEGRAVIR POTASSIUM
     Dosage: 800 MILLIGRAM, QD (1 EVERY 1 DAYS)
  99. ISENTRESS [Interacting]
     Active Substance: RALTEGRAVIR POTASSIUM
     Dosage: 800 MILLIGRAM, QD (1 EVERY 1 DAYS)
  100. ISENTRESS [Interacting]
     Active Substance: RALTEGRAVIR POTASSIUM
     Dosage: 800 MILLIGRAM, QD (1 EVERY 1 DAYS)
     Route: 065
  101. ISENTRESS [Interacting]
     Active Substance: RALTEGRAVIR POTASSIUM
     Dosage: 400 MILLIGRAM, BID (2 EVERY 1 DAYS)
  102. ISENTRESS [Interacting]
     Active Substance: RALTEGRAVIR POTASSIUM
     Dosage: 400 MILLIGRAM, BID (2 EVERY 1 DAYS)
  103. ISENTRESS [Interacting]
     Active Substance: RALTEGRAVIR POTASSIUM
     Dosage: 400 MILLIGRAM, BID (2 EVERY 1 DAYS)
     Route: 048
  104. ISENTRESS [Interacting]
     Active Substance: RALTEGRAVIR POTASSIUM
     Dosage: 400 MILLIGRAM, BID (2 EVERY 1 DAYS)
     Route: 048
  105. ISENTRESS [Interacting]
     Active Substance: RALTEGRAVIR POTASSIUM
     Dosage: UNK
     Route: 048
  106. ISENTRESS [Interacting]
     Active Substance: RALTEGRAVIR POTASSIUM
     Dosage: UNK
  107. ISENTRESS [Interacting]
     Active Substance: RALTEGRAVIR POTASSIUM
     Dosage: UNK
  108. ISENTRESS [Interacting]
     Active Substance: RALTEGRAVIR POTASSIUM
     Dosage: UNK
     Route: 048
  109. KALETRA [Interacting]
     Active Substance: LOPINAVIR\RITONAVIR
     Indication: HIV infection
     Dosage: UNK
     Route: 065
  110. KALETRA [Interacting]
     Active Substance: LOPINAVIR\RITONAVIR
     Dosage: UNK
  111. KALETRA [Interacting]
     Active Substance: LOPINAVIR\RITONAVIR
     Dosage: UNK
  112. KALETRA [Interacting]
     Active Substance: LOPINAVIR\RITONAVIR
     Dosage: UNK
     Route: 065
  113. KALETRA [Interacting]
     Active Substance: LOPINAVIR\RITONAVIR
     Dosage: UNK
     Route: 048
  114. KALETRA [Interacting]
     Active Substance: LOPINAVIR\RITONAVIR
     Dosage: UNK
  115. KALETRA [Interacting]
     Active Substance: LOPINAVIR\RITONAVIR
     Dosage: UNK
  116. KALETRA [Interacting]
     Active Substance: LOPINAVIR\RITONAVIR
     Dosage: UNK
     Route: 048
  117. KALETRA [Interacting]
     Active Substance: LOPINAVIR\RITONAVIR
     Dosage: 800 MILLIGRAM
     Route: 048
  118. KALETRA [Interacting]
     Active Substance: LOPINAVIR\RITONAVIR
     Dosage: 800 MILLIGRAM
     Route: 048
  119. KALETRA [Interacting]
     Active Substance: LOPINAVIR\RITONAVIR
     Dosage: 800 MILLIGRAM
  120. KALETRA [Interacting]
     Active Substance: LOPINAVIR\RITONAVIR
     Dosage: 800 MILLIGRAM
  121. LAMIVUDINE [Interacting]
     Active Substance: LAMIVUDINE
     Indication: HIV infection
     Dosage: UNK
     Route: 065
  122. LAMIVUDINE [Interacting]
     Active Substance: LAMIVUDINE
     Dosage: UNK
  123. LAMIVUDINE [Interacting]
     Active Substance: LAMIVUDINE
     Dosage: UNK
  124. LAMIVUDINE [Interacting]
     Active Substance: LAMIVUDINE
     Dosage: UNK
     Route: 065
  125. LAMIVUDINE [Interacting]
     Active Substance: LAMIVUDINE
     Dosage: UNK
     Route: 005
  126. LAMIVUDINE [Interacting]
     Active Substance: LAMIVUDINE
     Dosage: UNK
  127. LAMIVUDINE [Interacting]
     Active Substance: LAMIVUDINE
     Dosage: UNK
  128. LAMIVUDINE [Interacting]
     Active Substance: LAMIVUDINE
     Dosage: UNK
     Route: 005
  129. LAMIVUDINE [Interacting]
     Active Substance: LAMIVUDINE
     Dosage: UNK
     Route: 048
  130. LAMIVUDINE [Interacting]
     Active Substance: LAMIVUDINE
     Dosage: UNK
     Route: 048
  131. LAMIVUDINE [Interacting]
     Active Substance: LAMIVUDINE
     Dosage: UNK
  132. LAMIVUDINE [Interacting]
     Active Substance: LAMIVUDINE
     Dosage: UNK
  133. LOPINAVIR\RITONAVIR [Interacting]
     Active Substance: LOPINAVIR\RITONAVIR
     Indication: HIV infection
     Dosage: 800 MILLIGRAM
  134. LOPINAVIR\RITONAVIR [Interacting]
     Active Substance: LOPINAVIR\RITONAVIR
     Dosage: 800 MILLIGRAM
     Route: 048
  135. LOPINAVIR\RITONAVIR [Interacting]
     Active Substance: LOPINAVIR\RITONAVIR
     Dosage: 800 MILLIGRAM
     Route: 048
  136. LOPINAVIR\RITONAVIR [Interacting]
     Active Substance: LOPINAVIR\RITONAVIR
     Dosage: 800 MILLIGRAM
  137. LOPINAVIR\RITONAVIR [Interacting]
     Active Substance: LOPINAVIR\RITONAVIR
     Dosage: UNK
  138. LOPINAVIR\RITONAVIR [Interacting]
     Active Substance: LOPINAVIR\RITONAVIR
     Dosage: UNK
     Route: 065
  139. LOPINAVIR\RITONAVIR [Interacting]
     Active Substance: LOPINAVIR\RITONAVIR
     Dosage: UNK
  140. LOPINAVIR\RITONAVIR [Interacting]
     Active Substance: LOPINAVIR\RITONAVIR
     Dosage: UNK
     Route: 065
  141. LOPINAVIR\RITONAVIR [Interacting]
     Active Substance: LOPINAVIR\RITONAVIR
     Dosage: UNK
     Route: 048
  142. LOPINAVIR\RITONAVIR [Interacting]
     Active Substance: LOPINAVIR\RITONAVIR
     Dosage: UNK
     Route: 048
  143. LOPINAVIR\RITONAVIR [Interacting]
     Active Substance: LOPINAVIR\RITONAVIR
     Dosage: UNK
  144. LOPINAVIR\RITONAVIR [Interacting]
     Active Substance: LOPINAVIR\RITONAVIR
     Dosage: UNK
  145. QUETIAPINE FUMARATE [Interacting]
     Active Substance: QUETIAPINE FUMARATE
     Indication: Depression
     Dosage: UNK
  146. QUETIAPINE FUMARATE [Interacting]
     Active Substance: QUETIAPINE FUMARATE
     Indication: Bipolar disorder
     Dosage: UNK
  147. QUETIAPINE FUMARATE [Interacting]
     Active Substance: QUETIAPINE FUMARATE
     Indication: Mental disorder
     Dosage: UNK
     Route: 065
  148. QUETIAPINE FUMARATE [Interacting]
     Active Substance: QUETIAPINE FUMARATE
     Dosage: UNK
     Route: 065
  149. QUETIAPINE FUMARATE [Interacting]
     Active Substance: QUETIAPINE FUMARATE
     Dosage: UNK
  150. QUETIAPINE FUMARATE [Interacting]
     Active Substance: QUETIAPINE FUMARATE
     Dosage: UNK
  151. QUETIAPINE FUMARATE [Interacting]
     Active Substance: QUETIAPINE FUMARATE
     Dosage: UNK
     Route: 048
  152. QUETIAPINE FUMARATE [Interacting]
     Active Substance: QUETIAPINE FUMARATE
     Dosage: UNK
     Route: 048
  153. QUETIAPINE FUMARATE [Interacting]
     Active Substance: QUETIAPINE FUMARATE
     Indication: Depression
     Dosage: UNK
     Route: 065
  154. QUETIAPINE FUMARATE [Interacting]
     Active Substance: QUETIAPINE FUMARATE
     Indication: Bipolar disorder
     Dosage: UNK
  155. QUETIAPINE FUMARATE [Interacting]
     Active Substance: QUETIAPINE FUMARATE
     Dosage: UNK
  156. QUETIAPINE FUMARATE [Interacting]
     Active Substance: QUETIAPINE FUMARATE
     Dosage: UNK
     Route: 065
  157. QUETIAPINE FUMARATE [Interacting]
     Active Substance: QUETIAPINE FUMARATE
     Dosage: UNK
     Route: 048
  158. QUETIAPINE FUMARATE [Interacting]
     Active Substance: QUETIAPINE FUMARATE
     Dosage: UNK
  159. QUETIAPINE FUMARATE [Interacting]
     Active Substance: QUETIAPINE FUMARATE
     Dosage: UNK
  160. QUETIAPINE FUMARATE [Interacting]
     Active Substance: QUETIAPINE FUMARATE
     Dosage: UNK
     Route: 048
  161. QUETIAPINE FUMARATE [Interacting]
     Active Substance: QUETIAPINE FUMARATE
     Indication: Depression
     Dosage: UNK
  162. QUETIAPINE FUMARATE [Interacting]
     Active Substance: QUETIAPINE FUMARATE
     Indication: Bipolar disorder
     Dosage: UNK
     Route: 048
  163. QUETIAPINE FUMARATE [Interacting]
     Active Substance: QUETIAPINE FUMARATE
     Dosage: UNK
     Route: 048
  164. QUETIAPINE FUMARATE [Interacting]
     Active Substance: QUETIAPINE FUMARATE
     Dosage: UNK
  165. RALTEGRAVIR POTASSIUM [Interacting]
     Active Substance: RALTEGRAVIR POTASSIUM
     Indication: HIV infection
     Dosage: 800 MILLIGRAM, QD ( 1 EVERY 1 DAYS)
  166. RALTEGRAVIR POTASSIUM [Interacting]
     Active Substance: RALTEGRAVIR POTASSIUM
     Dosage: 800 MILLIGRAM, QD ( 1 EVERY 1 DAYS)
     Route: 065
  167. RALTEGRAVIR POTASSIUM [Interacting]
     Active Substance: RALTEGRAVIR POTASSIUM
     Dosage: 800 MILLIGRAM, QD ( 1 EVERY 1 DAYS)
     Route: 065
  168. RALTEGRAVIR POTASSIUM [Interacting]
     Active Substance: RALTEGRAVIR POTASSIUM
     Dosage: 800 MILLIGRAM, QD ( 1 EVERY 1 DAYS)
  169. RALTEGRAVIR POTASSIUM [Interacting]
     Active Substance: RALTEGRAVIR POTASSIUM
     Indication: HIV infection
     Dosage: UNK
     Route: 065
  170. RALTEGRAVIR POTASSIUM [Interacting]
     Active Substance: RALTEGRAVIR POTASSIUM
     Dosage: UNK
     Route: 065
  171. RALTEGRAVIR POTASSIUM [Interacting]
     Active Substance: RALTEGRAVIR POTASSIUM
     Dosage: UNK
  172. RALTEGRAVIR POTASSIUM [Interacting]
     Active Substance: RALTEGRAVIR POTASSIUM
     Dosage: UNK
  173. RALTEGRAVIR POTASSIUM [Interacting]
     Active Substance: RALTEGRAVIR POTASSIUM
     Dosage: 800 MILLIGRAM, QD (1 EVERY 1 DAYS)
  174. RALTEGRAVIR POTASSIUM [Interacting]
     Active Substance: RALTEGRAVIR POTASSIUM
     Dosage: 800 MILLIGRAM, QD (1 EVERY 1 DAYS)
  175. RALTEGRAVIR POTASSIUM [Interacting]
     Active Substance: RALTEGRAVIR POTASSIUM
     Dosage: 800 MILLIGRAM, QD (1 EVERY 1 DAYS)
     Route: 065
  176. RALTEGRAVIR POTASSIUM [Interacting]
     Active Substance: RALTEGRAVIR POTASSIUM
     Dosage: 800 MILLIGRAM, QD (1 EVERY 1 DAYS)
     Route: 065
  177. RALTEGRAVIR POTASSIUM [Interacting]
     Active Substance: RALTEGRAVIR POTASSIUM
     Dosage: 1 DOSAGE FORM, QD
     Route: 065
  178. RALTEGRAVIR POTASSIUM [Interacting]
     Active Substance: RALTEGRAVIR POTASSIUM
     Dosage: 1 DOSAGE FORM, QD
     Route: 065
  179. RALTEGRAVIR POTASSIUM [Interacting]
     Active Substance: RALTEGRAVIR POTASSIUM
     Dosage: 1 DOSAGE FORM, QD
  180. RALTEGRAVIR POTASSIUM [Interacting]
     Active Substance: RALTEGRAVIR POTASSIUM
     Dosage: 1 DOSAGE FORM, QD
  181. RALTEGRAVIR POTASSIUM [Interacting]
     Active Substance: RALTEGRAVIR POTASSIUM
     Dosage: 400 MILLIGRAM, QD (1 EVERY 1 DAYS)
     Route: 065
  182. RALTEGRAVIR POTASSIUM [Interacting]
     Active Substance: RALTEGRAVIR POTASSIUM
     Dosage: 400 MILLIGRAM, QD (1 EVERY 1 DAYS)
     Route: 065
  183. RALTEGRAVIR POTASSIUM [Interacting]
     Active Substance: RALTEGRAVIR POTASSIUM
     Dosage: 400 MILLIGRAM, QD (1 EVERY 1 DAYS)
  184. RALTEGRAVIR POTASSIUM [Interacting]
     Active Substance: RALTEGRAVIR POTASSIUM
     Dosage: 400 MILLIGRAM, QD (1 EVERY 1 DAYS)
  185. RALTEGRAVIR POTASSIUM [Interacting]
     Active Substance: RALTEGRAVIR POTASSIUM
     Dosage: 400 MILLIGRAM, BID(2 EVERY 1 DAYS)
     Route: 065
  186. RALTEGRAVIR POTASSIUM [Interacting]
     Active Substance: RALTEGRAVIR POTASSIUM
     Dosage: 400 MILLIGRAM, BID(2 EVERY 1 DAYS)
  187. RALTEGRAVIR POTASSIUM [Interacting]
     Active Substance: RALTEGRAVIR POTASSIUM
     Dosage: 400 MILLIGRAM, BID(2 EVERY 1 DAYS)
  188. RALTEGRAVIR POTASSIUM [Interacting]
     Active Substance: RALTEGRAVIR POTASSIUM
     Dosage: 400 MILLIGRAM, BID(2 EVERY 1 DAYS)
     Route: 065
  189. RALTEGRAVIR [Interacting]
     Active Substance: RALTEGRAVIR
     Indication: HIV infection
     Dosage: 400 MILLIGRAM, BID (1 EVERY 12 HOURS)
     Route: 048
  190. RALTEGRAVIR [Interacting]
     Active Substance: RALTEGRAVIR
     Dosage: 400 MILLIGRAM, BID (1 EVERY 12 HOURS)
  191. RALTEGRAVIR [Interacting]
     Active Substance: RALTEGRAVIR
     Dosage: 400 MILLIGRAM, BID (1 EVERY 12 HOURS)
  192. RALTEGRAVIR [Interacting]
     Active Substance: RALTEGRAVIR
     Dosage: 400 MILLIGRAM, BID (1 EVERY 12 HOURS)
     Route: 048
  193. RALTEGRAVIR [Interacting]
     Active Substance: RALTEGRAVIR
     Dosage: 400 MILLIGRAM, BID (1 EVERY 12 HOURS)
     Route: 065
  194. RALTEGRAVIR [Interacting]
     Active Substance: RALTEGRAVIR
     Dosage: 400 MILLIGRAM, BID (1 EVERY 12 HOURS)
  195. RALTEGRAVIR [Interacting]
     Active Substance: RALTEGRAVIR
     Dosage: 400 MILLIGRAM, BID (1 EVERY 12 HOURS)
  196. RALTEGRAVIR [Interacting]
     Active Substance: RALTEGRAVIR
     Dosage: 400 MILLIGRAM, BID (1 EVERY 12 HOURS)
     Route: 065
  197. RALTEGRAVIR [Interacting]
     Active Substance: RALTEGRAVIR
     Dosage: 400 MILLILITER, QD (1 EVERY 1 DAYS)
  198. RALTEGRAVIR [Interacting]
     Active Substance: RALTEGRAVIR
     Dosage: 400 MILLILITER, QD (1 EVERY 1 DAYS)
  199. RALTEGRAVIR [Interacting]
     Active Substance: RALTEGRAVIR
     Dosage: 400 MILLILITER, QD (1 EVERY 1 DAYS)
     Route: 048
  200. RALTEGRAVIR [Interacting]
     Active Substance: RALTEGRAVIR
     Dosage: 400 MILLILITER, QD (1 EVERY 1 DAYS)
     Route: 048
  201. RALTEGRAVIR [Interacting]
     Active Substance: RALTEGRAVIR
     Dosage: 800 MILLIGRAM, QD  (1 EVERY 1 DAYS)
  202. RALTEGRAVIR [Interacting]
     Active Substance: RALTEGRAVIR
     Dosage: 800 MILLIGRAM, QD  (1 EVERY 1 DAYS)
  203. RALTEGRAVIR [Interacting]
     Active Substance: RALTEGRAVIR
     Dosage: 800 MILLIGRAM, QD  (1 EVERY 1 DAYS)
     Route: 065
  204. RALTEGRAVIR [Interacting]
     Active Substance: RALTEGRAVIR
     Dosage: 800 MILLIGRAM, QD  (1 EVERY 1 DAYS)
     Route: 065
  205. RIVOTRIL [Interacting]
     Active Substance: CLONAZEPAM
     Indication: Bipolar disorder
     Dosage: UNK
  206. RIVOTRIL [Interacting]
     Active Substance: CLONAZEPAM
     Dosage: UNK
     Route: 048
  207. RIVOTRIL [Interacting]
     Active Substance: CLONAZEPAM
     Dosage: UNK
     Route: 048
  208. RIVOTRIL [Interacting]
     Active Substance: CLONAZEPAM
     Dosage: UNK
  209. SUSTIVA [Interacting]
     Active Substance: EFAVIRENZ
     Indication: HIV infection
     Dosage: UNK
     Route: 065
  210. SUSTIVA [Interacting]
     Active Substance: EFAVIRENZ
     Dosage: UNK
  211. SUSTIVA [Interacting]
     Active Substance: EFAVIRENZ
     Dosage: UNK
  212. SUSTIVA [Interacting]
     Active Substance: EFAVIRENZ
     Dosage: UNK
     Route: 065
  213. SUSTIVA [Interacting]
     Active Substance: EFAVIRENZ
     Dosage: 400 MILLIGRAM, BID (1 EVERY 12 HOURS)
  214. SUSTIVA [Interacting]
     Active Substance: EFAVIRENZ
     Dosage: 400 MILLIGRAM, BID (1 EVERY 12 HOURS)
     Route: 065
  215. SUSTIVA [Interacting]
     Active Substance: EFAVIRENZ
     Dosage: 400 MILLIGRAM, BID (1 EVERY 12 HOURS)
     Route: 065
  216. SUSTIVA [Interacting]
     Active Substance: EFAVIRENZ
     Dosage: 400 MILLIGRAM, BID (1 EVERY 12 HOURS)
  217. SUSTIVA [Interacting]
     Active Substance: EFAVIRENZ
     Dosage: 400 MILLIGRAM, QD (1 EVERY 12 HOURS)
  218. SUSTIVA [Interacting]
     Active Substance: EFAVIRENZ
     Dosage: 400 MILLIGRAM, QD (1 EVERY 12 HOURS)
     Route: 048
  219. SUSTIVA [Interacting]
     Active Substance: EFAVIRENZ
     Dosage: 400 MILLIGRAM, QD (1 EVERY 12 HOURS)
     Route: 048
  220. SUSTIVA [Interacting]
     Active Substance: EFAVIRENZ
     Dosage: 400 MILLIGRAM, QD (1 EVERY 12 HOURS)
  221. SUSTIVA [Interacting]
     Active Substance: EFAVIRENZ
     Dosage: 800 MILLIGRAM, QD (1 EVERY 1 DAY)
  222. SUSTIVA [Interacting]
     Active Substance: EFAVIRENZ
     Dosage: 800 MILLIGRAM, QD (1 EVERY 1 DAY)
  223. SUSTIVA [Interacting]
     Active Substance: EFAVIRENZ
     Dosage: 800 MILLIGRAM, QD (1 EVERY 1 DAY)
     Route: 048
  224. SUSTIVA [Interacting]
     Active Substance: EFAVIRENZ
     Dosage: 800 MILLIGRAM, QD (1 EVERY 1 DAY)
     Route: 048
  225. SUSTIVA [Interacting]
     Active Substance: EFAVIRENZ
     Dosage: UNK
     Route: 048
  226. SUSTIVA [Interacting]
     Active Substance: EFAVIRENZ
     Dosage: UNK
  227. SUSTIVA [Interacting]
     Active Substance: EFAVIRENZ
     Dosage: UNK
     Route: 048
  228. SUSTIVA [Interacting]
     Active Substance: EFAVIRENZ
     Dosage: UNK
  229. ENFUVIRTIDE [Interacting]
     Active Substance: ENFUVIRTIDE
     Indication: HIV infection
     Dosage: UNK
  230. ENFUVIRTIDE [Interacting]
     Active Substance: ENFUVIRTIDE
     Dosage: UNK
     Route: 065
  231. ENFUVIRTIDE [Interacting]
     Active Substance: ENFUVIRTIDE
     Dosage: UNK
     Route: 065
  232. ENFUVIRTIDE [Interacting]
     Active Substance: ENFUVIRTIDE
     Dosage: UNK
  233. ZOPICLONE [Interacting]
     Active Substance: ZOPICLONE
     Indication: Bipolar disorder
     Dosage: UNK
     Route: 065
  234. ZOPICLONE [Interacting]
     Active Substance: ZOPICLONE
     Indication: Mental disorder
     Dosage: UNK
  235. ZOPICLONE [Interacting]
     Active Substance: ZOPICLONE
     Dosage: UNK
  236. ZOPICLONE [Interacting]
     Active Substance: ZOPICLONE
     Dosage: UNK
     Route: 065
  237. ZOPICLONE [Interacting]
     Active Substance: ZOPICLONE
     Dosage: UNK
     Route: 048
  238. ZOPICLONE [Interacting]
     Active Substance: ZOPICLONE
     Dosage: UNK
  239. ZOPICLONE [Interacting]
     Active Substance: ZOPICLONE
     Dosage: UNK
  240. ZOPICLONE [Interacting]
     Active Substance: ZOPICLONE
     Dosage: UNK
     Route: 048
  241. CITALOPRAM HYDROBROMIDE [Interacting]
     Active Substance: CITALOPRAM HYDROBROMIDE
     Indication: Psychotic disorder
     Dosage: UNK
  242. CITALOPRAM HYDROBROMIDE [Interacting]
     Active Substance: CITALOPRAM HYDROBROMIDE
     Indication: Mental disorder
     Dosage: UNK
     Route: 065
  243. CITALOPRAM HYDROBROMIDE [Interacting]
     Active Substance: CITALOPRAM HYDROBROMIDE
     Dosage: UNK
     Route: 065
  244. CITALOPRAM HYDROBROMIDE [Interacting]
     Active Substance: CITALOPRAM HYDROBROMIDE
     Dosage: UNK
  245. RISPERIDONE [Interacting]
     Active Substance: RISPERIDONE
     Indication: Depression
     Dosage: UNK
  246. RISPERIDONE [Interacting]
     Active Substance: RISPERIDONE
     Dosage: UNK
     Route: 065
  247. RISPERIDONE [Interacting]
     Active Substance: RISPERIDONE
     Dosage: UNK
     Route: 065
  248. RISPERIDONE [Interacting]
     Active Substance: RISPERIDONE
     Dosage: UNK
  249. RITONAVIR [Interacting]
     Active Substance: RITONAVIR
     Indication: Depression
     Dosage: UNK
  250. RITONAVIR [Interacting]
     Active Substance: RITONAVIR
     Indication: HIV infection
     Dosage: UNK
     Route: 065
  251. RITONAVIR [Interacting]
     Active Substance: RITONAVIR
     Dosage: UNK
     Route: 065
  252. RITONAVIR [Interacting]
     Active Substance: RITONAVIR
     Dosage: UNK
  253. VIREAD [Interacting]
     Active Substance: TENOFOVIR DISOPROXIL FUMARATE
     Indication: Product used for unknown indication
     Dosage: UNK
     Route: 065
  254. VIREAD [Interacting]
     Active Substance: TENOFOVIR DISOPROXIL FUMARATE
     Dosage: UNK
  255. VIREAD [Interacting]
     Active Substance: TENOFOVIR DISOPROXIL FUMARATE
     Dosage: UNK
  256. VIREAD [Interacting]
     Active Substance: TENOFOVIR DISOPROXIL FUMARATE
     Dosage: UNK
     Route: 065
  257. VIREAD [Interacting]
     Active Substance: TENOFOVIR DISOPROXIL FUMARATE
     Dosage: UNK
     Route: 048
  258. VIREAD [Interacting]
     Active Substance: TENOFOVIR DISOPROXIL FUMARATE
     Dosage: UNK
  259. VIREAD [Interacting]
     Active Substance: TENOFOVIR DISOPROXIL FUMARATE
     Dosage: UNK
  260. VIREAD [Interacting]
     Active Substance: TENOFOVIR DISOPROXIL FUMARATE
     Dosage: UNK
     Route: 048
  261. ATAZANAVIR SULFATE [Suspect]
     Active Substance: ATAZANAVIR SULFATE
     Indication: HIV infection
     Dosage: UNK
  262. ATAZANAVIR SULFATE [Suspect]
     Active Substance: ATAZANAVIR SULFATE
     Dosage: UNK
     Route: 065
  263. ATAZANAVIR SULFATE [Suspect]
     Active Substance: ATAZANAVIR SULFATE
     Dosage: UNK
     Route: 065
  264. ATAZANAVIR SULFATE [Suspect]
     Active Substance: ATAZANAVIR SULFATE
     Dosage: UNK
  265. CITALOPRAM [Interacting]
     Active Substance: CITALOPRAM
     Indication: Mental disorder
     Dosage: UNK
  266. CITALOPRAM [Interacting]
     Active Substance: CITALOPRAM
     Indication: Psychotic disorder
     Dosage: UNK
     Route: 065
  267. CITALOPRAM [Interacting]
     Active Substance: CITALOPRAM
     Dosage: UNK
     Route: 065
  268. CITALOPRAM [Interacting]
     Active Substance: CITALOPRAM
     Dosage: UNK
  269. TENOFOVIR DISOPROXIL FUMARATE [Interacting]
     Active Substance: TENOFOVIR DISOPROXIL FUMARATE
     Indication: Product used for unknown indication
     Dosage: UNK
  270. TENOFOVIR DISOPROXIL FUMARATE [Interacting]
     Active Substance: TENOFOVIR DISOPROXIL FUMARATE
     Dosage: UNK
     Route: 065
  271. TENOFOVIR DISOPROXIL FUMARATE [Interacting]
     Active Substance: TENOFOVIR DISOPROXIL FUMARATE
     Dosage: UNK
     Route: 065
  272. TENOFOVIR DISOPROXIL FUMARATE [Interacting]
     Active Substance: TENOFOVIR DISOPROXIL FUMARATE
     Dosage: UNK
  273. ATAZANAVIR [Interacting]
     Active Substance: ATAZANAVIR
     Indication: HIV infection
     Dosage: UNK
  274. ATAZANAVIR [Interacting]
     Active Substance: ATAZANAVIR
     Dosage: UNK
  275. ATAZANAVIR [Interacting]
     Active Substance: ATAZANAVIR
     Dosage: UNK
     Route: 048
  276. ATAZANAVIR [Interacting]
     Active Substance: ATAZANAVIR
     Dosage: UNK
     Route: 048
  277. ATAZANAVIR [Interacting]
     Active Substance: ATAZANAVIR
     Dosage: UNK
  278. ATAZANAVIR [Interacting]
     Active Substance: ATAZANAVIR
     Dosage: UNK
  279. ATAZANAVIR [Interacting]
     Active Substance: ATAZANAVIR
     Dosage: UNK
     Route: 065
  280. ATAZANAVIR [Interacting]
     Active Substance: ATAZANAVIR
     Dosage: UNK
     Route: 065
  281. ATAZANAVIR [Interacting]
     Active Substance: ATAZANAVIR
     Dosage: UNK
  282. ATAZANAVIR [Interacting]
     Active Substance: ATAZANAVIR
     Dosage: UNK
     Route: 005
  283. ATAZANAVIR [Interacting]
     Active Substance: ATAZANAVIR
     Dosage: UNK
  284. ATAZANAVIR [Interacting]
     Active Substance: ATAZANAVIR
     Dosage: UNK
     Route: 005
  285. VALPROATE SODIUM [Suspect]
     Active Substance: VALPROATE SODIUM
     Indication: Bipolar disorder
     Dosage: UNK
  286. VALPROATE SODIUM [Suspect]
     Active Substance: VALPROATE SODIUM
     Dosage: UNK
     Route: 065
  287. VALPROATE SODIUM [Suspect]
     Active Substance: VALPROATE SODIUM
     Dosage: UNK
     Route: 065
  288. VALPROATE SODIUM [Suspect]
     Active Substance: VALPROATE SODIUM
     Dosage: UNK
  289. VALPROATE SODIUM [Interacting]
     Active Substance: VALPROATE SODIUM
     Indication: Bipolar disorder
     Dosage: UNK
  290. VALPROATE SODIUM [Interacting]
     Active Substance: VALPROATE SODIUM
     Dosage: UNK
     Route: 065
  291. VALPROATE SODIUM [Interacting]
     Active Substance: VALPROATE SODIUM
     Dosage: UNK
     Route: 065
  292. VALPROATE SODIUM [Interacting]
     Active Substance: VALPROATE SODIUM
     Dosage: UNK
  293. LAMIVUDINE [Interacting]
     Active Substance: LAMIVUDINE
     Indication: HIV infection
     Dosage: UNK
  294. LAMIVUDINE [Interacting]
     Active Substance: LAMIVUDINE
     Dosage: UNK
     Route: 048
  295. LAMIVUDINE [Interacting]
     Active Substance: LAMIVUDINE
     Dosage: UNK
     Route: 048
  296. LAMIVUDINE [Interacting]
     Active Substance: LAMIVUDINE
     Dosage: UNK
  297. FUZEON [Interacting]
     Active Substance: ENFUVIRTIDE
     Indication: HIV infection
     Dosage: UNK
  298. FUZEON [Interacting]
     Active Substance: ENFUVIRTIDE
     Dosage: UNK
     Route: 065
  299. FUZEON [Interacting]
     Active Substance: ENFUVIRTIDE
     Dosage: UNK
     Route: 065
  300. FUZEON [Interacting]
     Active Substance: ENFUVIRTIDE
     Dosage: UNK
  301. LOPINAVIR [Interacting]
     Active Substance: LOPINAVIR
     Indication: HIV infection
     Dosage: 800 MILLIGRAM, QD (1 EVERY 1 DAY)
  302. LOPINAVIR [Interacting]
     Active Substance: LOPINAVIR
     Dosage: 800 MILLIGRAM, QD (1 EVERY 1 DAY)
     Route: 048
  303. LOPINAVIR [Interacting]
     Active Substance: LOPINAVIR
     Dosage: 800 MILLIGRAM, QD (1 EVERY 1 DAY)
     Route: 048
  304. LOPINAVIR [Interacting]
     Active Substance: LOPINAVIR
     Dosage: 800 MILLIGRAM, QD (1 EVERY 1 DAY)
  305. ISENTRESS [Interacting]
     Active Substance: RALTEGRAVIR POTASSIUM
     Indication: HIV infection
     Dosage: 400 MILLIGRAM, BID (2 EVERY 1 DAYS)
  306. ISENTRESS [Interacting]
     Active Substance: RALTEGRAVIR POTASSIUM
     Dosage: 400 MILLIGRAM, BID (2 EVERY 1 DAYS)
     Route: 065
  307. ISENTRESS [Interacting]
     Active Substance: RALTEGRAVIR POTASSIUM
     Dosage: 400 MILLIGRAM, BID (2 EVERY 1 DAYS)
     Route: 065
  308. ISENTRESS [Interacting]
     Active Substance: RALTEGRAVIR POTASSIUM
     Dosage: 400 MILLIGRAM, BID (2 EVERY 1 DAYS)
  309. LOPINAVIR\RITONAVIR [Interacting]
     Active Substance: LOPINAVIR\RITONAVIR
     Dosage: UNK
  310. LOPINAVIR\RITONAVIR [Interacting]
     Active Substance: LOPINAVIR\RITONAVIR
     Dosage: UNK
     Route: 065
  311. LOPINAVIR\RITONAVIR [Interacting]
     Active Substance: LOPINAVIR\RITONAVIR
     Dosage: UNK
     Route: 065
  312. LOPINAVIR\RITONAVIR [Interacting]
     Active Substance: LOPINAVIR\RITONAVIR
     Dosage: UNK
  313. ENFUVIRTIDE [Interacting]
     Active Substance: ENFUVIRTIDE
     Dosage: UNK
  314. ENFUVIRTIDE [Interacting]
     Active Substance: ENFUVIRTIDE
     Dosage: UNK
     Route: 065
  315. ENFUVIRTIDE [Interacting]
     Active Substance: ENFUVIRTIDE
     Dosage: UNK
     Route: 065
  316. ENFUVIRTIDE [Interacting]
     Active Substance: ENFUVIRTIDE
     Dosage: UNK
  317. EMTRIVA [Concomitant]
     Active Substance: EMTRICITABINE
     Indication: Product used for unknown indication
     Dosage: UNK
  318. EMTRIVA [Concomitant]
     Active Substance: EMTRICITABINE
     Dosage: UNK
     Route: 065
  319. EMTRIVA [Concomitant]
     Active Substance: EMTRICITABINE
     Dosage: UNK
     Route: 065
  320. EMTRIVA [Concomitant]
     Active Substance: EMTRICITABINE
     Dosage: UNK
  321. ENFUVIRTIDE [Concomitant]
     Active Substance: ENFUVIRTIDE
     Indication: HIV infection
     Dosage: UNK
  322. ENFUVIRTIDE [Concomitant]
     Active Substance: ENFUVIRTIDE
     Dosage: UNK
  323. ENFUVIRTIDE [Concomitant]
     Active Substance: ENFUVIRTIDE
     Dosage: UNK
     Route: 065
  324. ENFUVIRTIDE [Concomitant]
     Active Substance: ENFUVIRTIDE
     Dosage: UNK
     Route: 065
  325. ENFUVIRTIDE [Concomitant]
     Active Substance: ENFUVIRTIDE
     Dosage: UNK
  326. ENFUVIRTIDE [Concomitant]
     Active Substance: ENFUVIRTIDE
     Dosage: UNK
  327. ENFUVIRTIDE [Concomitant]
     Active Substance: ENFUVIRTIDE
     Dosage: UNK
     Route: 058
  328. ENFUVIRTIDE [Concomitant]
     Active Substance: ENFUVIRTIDE
     Dosage: UNK
     Route: 058
  329. ATAZANAVIR SULFATE [Concomitant]
     Active Substance: ATAZANAVIR SULFATE
     Dosage: UNK
  330. ATAZANAVIR SULFATE [Concomitant]
     Active Substance: ATAZANAVIR SULFATE
     Dosage: UNK
     Route: 065
  331. ATAZANAVIR SULFATE [Concomitant]
     Active Substance: ATAZANAVIR SULFATE
     Dosage: UNK
     Route: 065
  332. ATAZANAVIR SULFATE [Concomitant]
     Active Substance: ATAZANAVIR SULFATE
     Dosage: UNK
  333. EFAVIRENZ [Concomitant]
     Active Substance: EFAVIRENZ
     Dosage: UNK
  334. EFAVIRENZ [Concomitant]
     Active Substance: EFAVIRENZ
     Dosage: UNK
     Route: 065
  335. EFAVIRENZ [Concomitant]
     Active Substance: EFAVIRENZ
     Dosage: UNK
     Route: 065
  336. EFAVIRENZ [Concomitant]
     Active Substance: EFAVIRENZ
     Dosage: UNK

REACTIONS (17)
  - Depression suicidal [Fatal]
  - Paranoia [Fatal]
  - Psychiatric decompensation [Fatal]
  - Psychomotor skills impaired [Fatal]
  - Tearfulness [Fatal]
  - Depressive symptom [Fatal]
  - Psychotic disorder [Fatal]
  - Suicidal ideation [Fatal]
  - Anxiety [Fatal]
  - Product use in unapproved indication [Fatal]
  - Depression [Fatal]
  - Drug interaction [Fatal]
  - Intentional product use issue [Fatal]
  - Loss of personal independence in daily activities [Fatal]
  - Prescribed overdose [Fatal]
  - Incorrect route of product administration [Fatal]
  - Off label use [Fatal]
